FAERS Safety Report 21164132 (Version 2)
Quarter: 2022Q3

REPORT INFORMATION
  Report Type: Spontaneous
  Country: FR (occurrence: FR)
  Receive Date: 20220803
  Receipt Date: 20220825
  Transmission Date: 20221027
  Serious: Yes (Hospitalization)
  Sender: FDA-Public Use
  Company Number: None

PATIENT
  Age: 51 Year
  Sex: Male

DRUGS (3)
  1. ACETAMINOPHEN [Suspect]
     Active Substance: ACETAMINOPHEN
     Indication: Product used for unknown indication
     Dosage: THERAPY START DATE : NASK
     Route: 065
     Dates: end: 20220711
  2. CLORAZEPATE DIPOTASSIUM [Suspect]
     Active Substance: CLORAZEPATE DIPOTASSIUM
     Indication: Mixed anxiety and depressive disorder
     Dosage: UNIT DOSE : 10 MG, FREQUENCY TIME : 1 DAYS
     Route: 065
     Dates: start: 20220701, end: 20220711
  3. TIAPRIDE HYDROCHLORIDE [Suspect]
     Active Substance: TIAPRIDE HYDROCHLORIDE
     Indication: Product used for unknown indication
     Dosage: 100 MG, SCORED TABLET, UNIT DOSE: 100 MG, DURATION : 10 DAYS, FREQUENCY TIME : 1 DAY
     Dates: start: 20220701, end: 20220711

REACTIONS (1)
  - Pancreatitis acute [Recovering/Resolving]

NARRATIVE: CASE EVENT DATE: 20220701
